FAERS Safety Report 10476914 (Version 1)
Quarter: 2014Q3

REPORT INFORMATION
  Report Type: Not Available
  Country: CH (occurrence: CH)
  Receive Date: 20140926
  Receipt Date: 20140926
  Transmission Date: 20150326
  Serious: Yes (Hospitalization)
  Sender: FDA-Public Use
  Company Number: CH-BEH-2014045146

PATIENT
  Age: 90 Year
  Sex: Male
  Weight: 85 kg

DRUGS (17)
  1. PRAMIPEXOL [Concomitant]
     Active Substance: PRAMIPEXOLE
     Dosage: 0-0-0-1
  2. TORASEMID MEPHA 5 MG [Concomitant]
     Dosage: 1/2-0-0
  3. OMEZOL [Concomitant]
     Active Substance: OMEPRAZOLE
     Dosage: 0-0-1
  4. TEMESTA EXP 1 MG [Concomitant]
     Dosage: 0-0-0
     Route: 048
  5. SIFROL 0.5 MG [Concomitant]
  6. LESCOL 40 MG [Concomitant]
     Dosage: 1-0-0
  7. COAPROVEL 300/25 [Concomitant]
     Dosage: 1-0-0
     Route: 048
  8. TIATRAL 100 MG [Concomitant]
     Dosage: 1-0-0
     Route: 048
  9. VITAMIN BURGERSTEIN (CELA) [Concomitant]
     Dosage: 0-1-0
  10. PRIVIGEN [Suspect]
     Active Substance: HUMAN IMMUNOGLOBULIN G
     Route: 042
     Dates: start: 20140806, end: 20140806
  11. CALCIMAGON D3 FORTE [Concomitant]
     Dosage: 0-0-1
  12. TAMSULOSIN RET.0.4 MG [Concomitant]
     Dosage: 0-0-1
     Route: 048
  13. COMILORID- MEPHA [Concomitant]
     Dosage: 1/2-0-0
  14. IMUREK [Concomitant]
     Active Substance: AZATHIOPRINE
     Route: 048
  15. MESTINON [Concomitant]
     Active Substance: PYRIDOSTIGMINE BROMIDE
     Dosage: 1-1-0
     Route: 048
  16. PRIVIGEN [Suspect]
     Active Substance: HUMAN IMMUNOGLOBULIN G
     Indication: MYASTHENIA GRAVIS
     Route: 042
     Dates: start: 20140805, end: 20140805
  17. PREDNISON 5 MG [Concomitant]
     Dosage: 2-0-0
     Route: 048

REACTIONS (7)
  - Fall [Recovering/Resolving]
  - Vertigo [Recovered/Resolved]
  - Off label use [Recovering/Resolving]
  - Ataxia [Recovered/Resolved]
  - Vertigo positional [Recovered/Resolved]
  - Urinary tract infection [Unknown]
  - Gait disturbance [Recovered/Resolved]

NARRATIVE: CASE EVENT DATE: 2014
